FAERS Safety Report 6307045-5 (Version None)
Quarter: 2009Q3

REPORT INFORMATION
  Report Type: 
  Country: None (occurrence: None)
  Receive Date: 20090812
  Receipt Date: 20090809
  Transmission Date: 20100115
  Serious: Yes (Death)
  Sender: FDA-Public Use
  Company Number: PHHY2009CA33450

PATIENT

DRUGS (1)
  1. DIOVAN T30230++HY [Suspect]

REACTIONS (1)
  - DEATH [None]
